FAERS Safety Report 10530128 (Version 1)
Quarter: 2014Q4

REPORT INFORMATION
  Report Type: Spontaneous
  Country: US (occurrence: None)
  Receive Date: 20141020
  Receipt Date: 20141020
  Transmission Date: 20150528
  Serious: Yes (Hospitalization)
  Sender: FDA-Public Use
  Company Number: None

PATIENT
  Age: 80 Year
  Sex: Male
  Weight: 63.9 kg

DRUGS (1)
  1. RUXOLITINIB [Suspect]
     Active Substance: RUXOLITINIB
     Indication: CHRONIC MYELOID LEUKAEMIA
     Route: 048
     Dates: start: 20140821, end: 20141010

REACTIONS (5)
  - Pneumothorax [None]
  - Pleural effusion [None]
  - Dyspnoea [None]
  - Pulmonary haemorrhage [None]
  - Haemoptysis [None]

NARRATIVE: CASE EVENT DATE: 20141010
